FAERS Safety Report 8158641-4 (Version None)
Quarter: 2012Q1

REPORT INFORMATION
  Report Type: 
  Country: None (occurrence: None)
  Receive Date: 20120217
  Receipt Date: 20120209
  Transmission Date: 20120608
  Serious: Yes (Death)
  Sender: FDA-Public Use
  Company Number: KR-AGG-02-2012-0310

PATIENT
  Age: 61 Year
  Sex: Male

DRUGS (3)
  1. TIROFIBAN [Suspect]
     Indication: BASILAR ARTERY OCCLUSION
     Dosage: INFUSION OF 0.1 UG/KG/MIN INTRAVENOUS
     Route: 042
  2. UROKINASE [Concomitant]
  3. TIROFIBAN [Suspect]
     Indication: BASILAR ARTERY OCCLUSION
     Dosage: 0.4 UG/KG/MIN BOLUS X 3MIN INTRAVENOUS
     Route: 042

REACTIONS (3)
  - OFF LABEL USE [None]
  - COMPUTERISED TOMOGRAM ABNORMAL [None]
  - CEREBRAL HAEMORRHAGE [None]
